FAERS Safety Report 14484467 (Version 2)
Quarter: 2018Q1

REPORT INFORMATION
  Report Type: Spontaneous
  Country: BR (occurrence: BR)
  Receive Date: 20180205
  Receipt Date: 20180219
  Transmission Date: 20180509
  Serious: Yes (Disabling)
  Sender: FDA-Public Use
  Company Number: BR-009507513-1801BRA013782

PATIENT
  Age: 28 Year
  Sex: Female
  Weight: 59 kg

DRUGS (1)
  1. IMPLANON [Suspect]
     Active Substance: ETONOGESTREL
     Indication: CONTRACEPTION
     Dosage: 1 IMPLANT, IN LEFT ARM
     Route: 059
     Dates: start: 20171101, end: 20180119

REACTIONS (11)
  - Movement disorder [Recovering/Resolving]
  - Acne [Recovering/Resolving]
  - Hypersensitivity [Recovering/Resolving]
  - Fatigue [Recovering/Resolving]
  - Alopecia [Recovering/Resolving]
  - Seborrhoea [Unknown]
  - Abdominal pain [Recovering/Resolving]
  - Irritability [Recovering/Resolving]
  - Decreased interest [Recovering/Resolving]
  - Anger [Recovering/Resolving]
  - Depression [Unknown]

NARRATIVE: CASE EVENT DATE: 201712
